FAERS Safety Report 7296572-2 (Version None)
Quarter: 2011Q1

REPORT INFORMATION
  Report Type: 
  Country: None (occurrence: None)
  Receive Date: 20110216
  Receipt Date: 20110207
  Transmission Date: 20110831
  Serious: Yes (Other)
  Sender: FDA-Public Use
  Company Number: PHHO2011US02566

PATIENT
  Sex: Female
  Weight: 56.7 kg

DRUGS (3)
  1. CALCIUM [Concomitant]
  2. ZOLEDRONATE [Suspect]
     Indication: BREAST CANCER
     Dosage: 4 MG, UNK
     Route: 042
     Dates: start: 20081222, end: 20100204
  3. VITAMIN D [Concomitant]

REACTIONS (3)
  - IMPAIRED HEALING [None]
  - TOOTH EXTRACTION [None]
  - OSTEONECROSIS OF JAW [None]
